FAERS Safety Report 18881175 (Version 1)
Quarter: 2021Q1

REPORT INFORMATION
  Report Type: Spontaneous
  Country: CN (occurrence: CN)
  Receive Date: 20210212
  Receipt Date: 20210212
  Transmission Date: 20210420
  Serious: Yes (Hospitalization, Other)
  Sender: FDA-Public Use
  Company Number: CN-LUPIN PHARMACEUTICALS INC.-2021-01561

PATIENT
  Age: 16 Year
  Sex: Female

DRUGS (1)
  1. HYDROCORTISONE. [Suspect]
     Active Substance: HYDROCORTISONE
     Indication: POSTOPERATIVE HYPOPITUITARISM
     Dosage: 15 MILLIGRAM, QD,10MG IN THE MORNING AND 5MG IN THE EVENING
     Route: 065

REACTIONS (1)
  - Osteonecrosis [Recovering/Resolving]
